FAERS Safety Report 5220154-7 (Version None)
Quarter: 2007Q1

REPORT INFORMATION
  Report Type: 
  Country: None (occurrence: None)
  Receive Date: 20061201
  Receipt Date: 20060720
  Transmission Date: 20070707
  Serious: No
  Sender: FDA-Public Use
  Company Number: 2006PV017939

PATIENT
  Age: 29 Year
  Sex: Female
  Weight: 176.9028 kg

DRUGS (5)
  1. BYETTA [Suspect]
     Indication: DIABETES MELLITUS NON-INSULIN-DEPENDENT
     Dosage: 5 MCG;BID;SC
     Route: 058
     Dates: start: 20060713
  2. ACTOS /USA/ [Concomitant]
  3. AMARYL [Concomitant]
  4. LOTREL [Concomitant]
  5. HYDROCODONE [Concomitant]

REACTIONS (1)
  - PAINFUL DEFAECATION [None]
